FAERS Safety Report 8335092-0 (Version None)
Quarter: 2012Q2

REPORT INFORMATION
  Report Type: 
  Country: None (occurrence: None)
  Receive Date: 20120503
  Receipt Date: 20120427
  Transmission Date: 20120825
  Serious: Yes (Hospitalization)
  Sender: FDA-Public Use
  Company Number: HU-UCBSA-056378

PATIENT
  Age: 58 Year
  Sex: Female
  Weight: 100 kg

DRUGS (5)
  1. PREDNISOLONE [Concomitant]
     Indication: RHEUMATOID ARTHRITIS
     Route: 048
     Dates: start: 20110101
  2. WARFARIN SODIUM [Concomitant]
     Indication: EMBOLISM
     Route: 048
     Dates: start: 20090101
  3. LANSOPTOL [Concomitant]
     Indication: HYPERTONIA
     Route: 048
     Dates: start: 20090101
  4. CIMZIA [Suspect]
     Indication: RHEUMATOID ARTHRITIS
     Dosage: 1 DOSE
     Route: 058
     Dates: start: 20120312, end: 20120101
  5. PORTIRON [Concomitant]
     Indication: HYPERTONIA
     Route: 048
     Dates: start: 20090101

REACTIONS (6)
  - PYREXIA [None]
  - PURPURA [None]
  - LEUKOPENIA [None]
  - THROMBOCYTOPENIA [None]
  - PETECHIAE [None]
  - UPPER RESPIRATORY TRACT INFECTION [None]
